FAERS Safety Report 24776783 (Version 1)
Quarter: 2024Q4

REPORT INFORMATION
  Report Type: Report from Study
  Country: NL (occurrence: NL)
  Receive Date: 20241226
  Receipt Date: 20241226
  Transmission Date: 20250115
  Serious: Yes (Other)
  Sender: ABBVIE
  Company Number: NL-ABBVIE-6057951

PATIENT
  Age: 67 Year
  Sex: Male

DRUGS (20)
  1. FOSCARBIDOPA\FOSLEVODOPA [Suspect]
     Active Substance: FOSCARBIDOPA\FOSLEVODOPA
     Indication: Parkinson^s disease
     Route: 058
     Dates: start: 20240507
  2. FOSCARBIDOPA\FOSLEVODOPA [Suspect]
     Active Substance: FOSCARBIDOPA\FOSLEVODOPA
     Dosage: LOADING DOSE:0.40 ML, BASE INFUSION RATE: 0.71 ML/H, HIGH INFUSION RATE: 0.71 ML/H, LOW INFUSION ...
     Route: 058
     Dates: start: 20240730, end: 20240731
  3. FOSCARBIDOPA\FOSLEVODOPA [Suspect]
     Active Substance: FOSCARBIDOPA\FOSLEVODOPA
     Dosage: LOADING DOSE:0.40 ML, BASE INFUSION RATE0.77 ML/H, HIGH INFUSION RATE: 0.77 ML/H, LOW INFUSION RA...
     Route: 058
     Dates: start: 20240731, end: 20240801
  4. FOSCARBIDOPA\FOSLEVODOPA [Suspect]
     Active Substance: FOSCARBIDOPA\FOSLEVODOPA
     Dosage: LOADING DOSE:0.40 ML, BASE INFUSION RATE:0.83 ML/H, HIGH INFUSION RATE: 0.83 ML/H, LOW INFUSION R...
     Route: 058
     Dates: start: 20240801, end: 20240802
  5. FOSCARBIDOPA\FOSLEVODOPA [Suspect]
     Active Substance: FOSCARBIDOPA\FOSLEVODOPA
     Dosage: LOADING DOSE:0.40 ML, BASE INFUSION RATE:0.86 ML/H, HIGH INFUSION RATE:0.86 ML/H, LOW INFUSION RA...
     Route: 058
     Dates: start: 20240809, end: 20240814
  6. FOSCARBIDOPA\FOSLEVODOPA [Suspect]
     Active Substance: FOSCARBIDOPA\FOSLEVODOPA
     Dosage: LOADING DOSE:0.40 ML, BASE INFUSION RATE:0.86 ML/H, HIGH INFUSION RATE:0.86 ML/H, LOW INFUSION RA...
     Route: 058
     Dates: start: 20240802, end: 20240809
  7. FOSCARBIDOPA\FOSLEVODOPA [Suspect]
     Active Substance: FOSCARBIDOPA\FOSLEVODOPA
     Dosage: LOADING DOSE:0.40 ML, BASE INFUSION RATE:0.89 ML/H, HIGH INFUSION RATE:0.89 ML/H. THERAPY DURATIO...
     Route: 058
     Dates: start: 20240814, end: 20241004
  8. FOSCARBIDOPA\FOSLEVODOPA [Suspect]
     Active Substance: FOSCARBIDOPA\FOSLEVODOPA
     Dosage: LOADING DOSE:0.40 ML, BASE INFUSION RATE:0.92 ML/H, HIGH INFUSION RATE:0.92 ML/H, LOW INFUSION RA...
     Route: 058
     Dates: start: 20241004, end: 20241106
  9. FOSCARBIDOPA\FOSLEVODOPA [Suspect]
     Active Substance: FOSCARBIDOPA\FOSLEVODOPA
     Dosage: LOADING DOSE:0.40 ML, BASE INFUSION RATE: 0.95 ML/H, HIGH INFUSION RATE: 0.95 ML/H, LOW INFUSION ...
     Route: 058
     Dates: start: 20241106
  10. PRAMIPEXOLE [Concomitant]
     Active Substance: PRAMIPEXOLE\PRAMIPEXOLE DIHYDROCHLORIDE
     Indication: Parkinson^s disease
  11. BENSERAZIDE HYDROCHLORIDE\LEVODOPA [Concomitant]
     Active Substance: BENSERAZIDE HYDROCHLORIDE\LEVODOPA
     Indication: Product used for unknown indication
  12. PRAMIPEXOLE [Concomitant]
     Active Substance: PRAMIPEXOLE\PRAMIPEXOLE DIHYDROCHLORIDE
     Indication: Parkinson^s disease
  13. PANTOPRAZOLE [Concomitant]
     Active Substance: PANTOPRAZOLE
     Indication: Dyspepsia
  14. POLYETHYLENE GLYCOLS [Concomitant]
     Active Substance: POLYETHYLENE GLYCOLS
     Indication: Gastrointestinal motility disorder
  15. SYMMETREL [Concomitant]
     Active Substance: AMANTADINE HYDROCHLORIDE
     Indication: Parkinson^s disease
     Dosage: FREQUENCY:2DD, (3 P.M. AND 8 P.M)
  16. SYMMETREL [Concomitant]
     Active Substance: AMANTADINE HYDROCHLORIDE
     Indication: Parkinson^s disease
     Dosage: AT 3 P.M., INCREASE DOSE
  17. DIAZEPAM [Concomitant]
     Active Substance: DIAZEPAM
     Indication: Product used for unknown indication
     Dosage: IF NEEDED
  18. DICLOFENAC [Concomitant]
     Active Substance: DICLOFENAC
     Indication: Product used for unknown indication
     Dosage: IF NEEDED
  19. CARBIDOPA\ENTACAPONE\LEVODOPA [Concomitant]
     Active Substance: CARBIDOPA\ENTACAPONE\LEVODOPA
     Indication: Product used for unknown indication
     Dosage: 75/18,5/200 MG 6 DD 1
  20. APOMORPHINE [Concomitant]
     Active Substance: APOMORPHINE
     Indication: Product used for unknown indication
     Dosage: 0,7 ML/H

REACTIONS (9)
  - Knee operation [Recovering/Resolving]
  - Abnormal dreams [Not Recovered/Not Resolved]
  - Catheter site erythema [Not Recovered/Not Resolved]
  - Catheter site induration [Not Recovered/Not Resolved]
  - Catheter site bruise [Not Recovered/Not Resolved]
  - Fear [Not Recovered/Not Resolved]
  - On and off phenomenon [Not Recovered/Not Resolved]
  - Dyskinesia [Not Recovered/Not Resolved]
  - Therapeutic product effect incomplete [Unknown]

NARRATIVE: CASE EVENT DATE: 20240101
